FAERS Safety Report 23026860 (Version 4)
Quarter: 2023Q4

REPORT INFORMATION
  Report Type: Spontaneous
  Country: US (occurrence: US)
  Receive Date: 20231004
  Receipt Date: 20231107
  Transmission Date: 20240109
  Serious: No
  Sender: FDA-Public Use
  Company Number: US-ABBVIE-5435138

PATIENT
  Age: 12 Year
  Sex: Male
  Weight: 49.895 kg

DRUGS (1)
  1. LUPRON DEPOT [Suspect]
     Active Substance: LEUPROLIDE ACETATE
     Indication: Product used for unknown indication
     Dosage: FORM STRENGTH: 22.5 MILLIGRAM??SHOT WAS 15 SEP 2023?SERIAL NUMBER FOR THE PRODUCT WAS GIVEN 10001...
     Route: 065
     Dates: start: 202212

REACTIONS (4)
  - Behaviour disorder [Not Recovered/Not Resolved]
  - Therapeutic product effect incomplete [Unknown]
  - Drug ineffective [Not Recovered/Not Resolved]
  - Emotional disorder [Not Recovered/Not Resolved]

NARRATIVE: CASE EVENT DATE: 20230918
